FAERS Safety Report 10600974 (Version 3)
Quarter: 2015Q1

REPORT INFORMATION
  Report Type: Spontaneous
  Country: SK (occurrence: SK)
  Receive Date: 20141124
  Receipt Date: 20150102
  Transmission Date: 20150720
  Serious: Yes (Hospitalization, Other)
  Sender: FDA-Public Use
  Company Number: SK-009507513-1411SVK009260

PATIENT
  Age: 52 Year
  Sex: Female
  Weight: 65 kg

DRUGS (12)
  1. ATROVENT [Concomitant]
     Active Substance: IPRATROPIUM BROMIDE
     Dosage: 2-2-2
  2. EUTHYROX [Concomitant]
     Active Substance: LEVOTHYROXINE SODIUM
  3. PEGINTRON [Suspect]
     Active Substance: PEGINTERFERON ALFA-2B
     Indication: HEPATITIS C
     Dosage: 1 DF, QW
     Route: 058
     Dates: start: 20140616, end: 20141110
  4. DEXTROSE. [Concomitant]
     Active Substance: DEXTROSE
  5. SYMBICORT [Concomitant]
     Active Substance: BUDESONIDE\FORMOTEROL FUMARATE DIHYDRATE
     Dosage: 1-0-1
  6. POTASSIUM CHLORIDE. [Concomitant]
     Active Substance: POTASSIUM CHLORIDE
  7. VICTRELIS [Suspect]
     Active Substance: BOCEPREVIR
     Indication: HEPATITIS C
     Dosage: DAILY DOSAGE: 4-4-4
     Route: 048
     Dates: start: 20140714, end: 20141110
  8. AUGMENTIN [Concomitant]
     Active Substance: AMOXICILLIN\CLAVULANATE POTASSIUM
     Dosage: UNK
     Route: 042
  9. AMBROBENE [Concomitant]
     Route: 042
  10. REBETOL [Suspect]
     Active Substance: RIBAVIRIN
     Indication: HEPATITIS C
     Dosage: DAILY DOSAGE: 2-0-2
     Route: 048
     Dates: start: 20140616, end: 20141110
  11. CIPHIN INJECTION [Concomitant]
     Route: 042
  12. SODIUM CHLORIDE. [Concomitant]
     Active Substance: SODIUM CHLORIDE

REACTIONS (7)
  - Thrombocytopenia [Recovered/Resolved]
  - Circulatory collapse [Recovered/Resolved]
  - Skull fractured base [Recovered/Resolved]
  - Cerebral haemorrhage [Recovered/Resolved]
  - Hypothyroidism [Recovered/Resolved]
  - Anaemia [Recovered/Resolved]
  - Leukopenia [Recovered/Resolved]

NARRATIVE: CASE EVENT DATE: 20140714
